FAERS Safety Report 16485825 (Version 1)
Quarter: 2019Q2

REPORT INFORMATION
  Report Type: Spontaneous
  Country: US (occurrence: US)
  Receive Date: 20190517
  Receipt Date: 20190517
  Transmission Date: 20190711
  Serious: No
  Sender: FDA-Public Use
  Company Number: None

PATIENT
  Sex: Female

DRUGS (16)
  1. GUANFACINE TAB [Concomitant]
  2. PANTOPRAZOLE TAB [Concomitant]
  3. OXYCOD/APAP TAB [Concomitant]
  4. WIXELA INHUB AER [Concomitant]
  5. ETODOLAC TAB [Concomitant]
  6. CELECOXIB CAP [Concomitant]
  7. ADVAIR DISKU AER [Concomitant]
  8. BENLYSTA [Suspect]
     Active Substance: BELIMUMAB
     Indication: SYSTEMIC LUPUS ERYTHEMATOSUS
     Route: 058
     Dates: start: 20181222
  9. VITAMIN D CAP [Concomitant]
  10. ALBUTEROL AER HFA [Concomitant]
  11. DULOXETOINE CAP [Concomitant]
  12. FUROSEMDE TAB [Concomitant]
  13. LYRICA CAP [Concomitant]
  14. LATUDA TAB [Concomitant]
  15. LEVOTHYROXIN TAB [Concomitant]
  16. HYDROXYCHLOR TAB [Concomitant]

REACTIONS (2)
  - Ankle operation [None]
  - Therapy cessation [None]

NARRATIVE: CASE EVENT DATE: 2019
